FAERS Safety Report 9914798 (Version 1)
Quarter: 2014Q1

REPORT INFORMATION
  Report Type: Spontaneous
  Country: PT (occurrence: PT)
  Receive Date: 20140220
  Receipt Date: 20140220
  Transmission Date: 20141002
  Serious: Yes (Death)
  Sender: FDA-Public Use
  Company Number: PT-GILEAD-2014-0094799

PATIENT
  Age: 69 Year
  Sex: Female

DRUGS (8)
  1. VISTIDE [Suspect]
     Indication: PROGRESSIVE MULTIFOCAL LEUKOENCEPHALOPATHY
     Dosage: 275 MG, QD
     Route: 042
  2. ALEMTUZUMAB [Concomitant]
  3. PREDNISOLONE [Concomitant]
  4. CHLORAMBUCIL [Concomitant]
  5. FLUDARABINE [Concomitant]
  6. CYCLOPHOSPHAMIDE [Concomitant]
  7. VINCRISTINE [Concomitant]
  8. IMMUNOGLOBULIN G HUMAN [Concomitant]

REACTIONS (1)
  - Drug ineffective for unapproved indication [Fatal]
